FAERS Safety Report 25770932 (Version 1)
Quarter: 2025Q3

REPORT INFORMATION
  Report Type: Spontaneous
  Country: CN (occurrence: CN)
  Receive Date: 20250908
  Receipt Date: 20250908
  Transmission Date: 20251020
  Serious: Yes (Other)
  Sender: BAXTER
  Company Number: None

PATIENT
  Age: 48 Year
  Sex: Female
  Weight: 79 kg

DRUGS (5)
  1. CYCLOPHOSPHAMIDE [Suspect]
     Active Substance: CYCLOPHOSPHAMIDE
     Indication: Hormone receptor positive breast cancer
     Dosage: 1000 MG, QD + NS 50ML (C2 COURSE OF CHEMOTHERAPY)
     Route: 041
     Dates: start: 20250620, end: 20250620
  2. SODIUM CHLORIDE [Suspect]
     Active Substance: SODIUM CHLORIDE
     Dosage: 50 ML, QD + CYCLOPHOSPHAMIDE (ENDOXAN) 1G (C2 COURSE OF CHEMOTHERAPY)
     Route: 041
     Dates: start: 20250620, end: 20250620
  3. SODIUM CHLORIDE [Suspect]
     Active Substance: SODIUM CHLORIDE
     Dosage: 100 ML, QD + EPIRUBICIN (PHARMORUBICIN) 150MG (C2 COURSE OF CHEMOTHERAPY)
     Route: 041
     Dates: start: 20250628, end: 20250628
  4. EPIRUBICIN [Suspect]
     Active Substance: EPIRUBICIN
     Indication: Hormone receptor positive breast cancer
     Dosage: 150 MG, QD + NS 100ML (C2 COURSE OF CHEMOTHERAPY)
     Route: 041
     Dates: start: 20250628, end: 20250628
  5. Ai duo [Concomitant]
     Route: 058
     Dates: start: 202506

REACTIONS (3)
  - White blood cell count decreased [Recovering/Resolving]
  - Neutrophil count decreased [Recovering/Resolving]
  - Platelet count decreased [Recovering/Resolving]

NARRATIVE: CASE EVENT DATE: 20250628
